FAERS Safety Report 4887249-9 (Version None)
Quarter: 2005Q4

REPORT INFORMATION
  Report Type: 
  Country: None (occurrence: None)
  Receive Date: 20051221
  Receipt Date: 20051031
  Transmission Date: 20060501
  Serious: No
  Sender: FDA-Public Use
  Company Number: US-YAMANOUCHI-YPA20050570

PATIENT
  Age: 71 Year
  Sex: Female
  Weight: 90.7194 kg

DRUGS (14)
  1. VESICARE [Suspect]
     Indication: HYPERTONIC BLADDER
     Dosage: 10 MG QD PO
     Route: 048
     Dates: start: 20051030, end: 20051030
  2. VESICARE [Suspect]
     Indication: HYPERTONIC BLADDER
     Dosage: 5 MG QD PO
     Route: 048
     Dates: start: 20051031
  3. ENABLEX [Concomitant]
  4. ATENOLOL [Concomitant]
  5. ZOCOR [Concomitant]
  6. LEVOTHROID [Concomitant]
  7. EVISTA [Concomitant]
  8. MOVE-FREEE (GLUCOSAMINE/CHONDROITIN) [Concomitant]
  9. NEXIUM [Concomitant]
  10. METAMUCIL [Concomitant]
  11. ANTIOXIDANT [Concomitant]
  12. COLACE [Concomitant]
  13. ASPIRIN [Concomitant]
  14. VITAMIN E [Concomitant]

REACTIONS (5)
  - ASTHENIA [None]
  - FATIGUE [None]
  - FEELING ABNORMAL [None]
  - GASTROENTERITIS VIRAL [None]
  - MUSCLE SPASMS [None]
